FAERS Safety Report 21144347 (Version 1)
Quarter: 2022Q3

REPORT INFORMATION
  Report Type: Spontaneous
  Country: US (occurrence: US)
  Receive Date: 20220728
  Receipt Date: 20220728
  Transmission Date: 20221026
  Serious: No
  Sender: FDA-Public Use
  Company Number: US-PFIZER INC-PV202200030768

PATIENT

DRUGS (1)
  1. DESVENLAFAXINE SUCCINATE [Suspect]
     Active Substance: DESVENLAFAXINE SUCCINATE
     Dosage: UNK

REACTIONS (5)
  - Drug ineffective [Unknown]
  - Electric shock sensation [Unknown]
  - Crying [Unknown]
  - Anger [Unknown]
  - Withdrawal syndrome [Unknown]
